FAERS Safety Report 5298848-7 (Version None)
Quarter: 2007Q2

REPORT INFORMATION
  Report Type: 
  Country: None (occurrence: None)
  Receive Date: 20070410
  Receipt Date: 20070403
  Transmission Date: 20071010
  Serious: Yes (Hospitalization)
  Sender: FDA-Public Use
  Company Number: A0645790A

PATIENT
  Age: 40 Year
  Sex: Female

DRUGS (3)
  1. LAMICTAL [Suspect]
     Indication: BIPOLAR DISORDER
     Dosage: 150 MG PER DAY ORAL
     Route: 048
  2. ADDERALL 10 [Concomitant]
  3. ATOMOXETINE HYDROCHLORIDE [Concomitant]

REACTIONS (6)
  - COGWHEEL RIGIDITY [None]
  - CONDITION AGGRAVATED [None]
  - DEPRESSION [None]
  - DRUG INEFFECTIVE [None]
  - DYSTONIA [None]
  - POSTURING [None]
